FAERS Safety Report 8953148 (Version 1)
Quarter: 2012Q4

REPORT INFORMATION
  Report Type: Report from Study
  Country: JP (occurrence: JP)
  Receive Date: 20121206
  Receipt Date: 20121206
  Transmission Date: 20130627
  Serious: Yes (Hospitalization)
  Sender: FDA-Public Use
  Company Number: JP-009507513-1212JPN000587

PATIENT
  Age: 79 Year
  Sex: Male
  Weight: 53 kg

DRUGS (4)
  1. JANUVIA TABLETS 50MG [Suspect]
     Indication: TYPE 2 DIABETES MELLITUS
     Dosage: 50 mg, qd
     Route: 048
     Dates: start: 20110908
  2. MUCOSTA [Concomitant]
     Indication: PROPHYLAXIS AGAINST GASTROINTESTINAL ULCER
     Dosage: 100 mg, tid
     Route: 048
     Dates: start: 2002
  3. GASTER [Concomitant]
     Indication: GASTRIC ULCER
     Dosage: 20 mg, bid
     Route: 048
     Dates: start: 2002
  4. KETAS [Concomitant]
     Indication: CEREBRAL INFARCTION
     Dosage: 10 mg, tid
     Route: 048
     Dates: start: 2002

REACTIONS (1)
  - Lymphoma [Not Recovered/Not Resolved]
